FAERS Safety Report 7573798-1 (Version None)
Quarter: 2011Q2

REPORT INFORMATION
  Report Type: 
  Country: None (occurrence: None)
  Receive Date: 20110621
  Receipt Date: 20110602
  Transmission Date: 20111010
  Serious: Yes (Death)
  Sender: FDA-Public Use
  Company Number: 20110449

PATIENT
  Age: 40 Year
  Sex: Male

DRUGS (2)
  1. CYCLOSPORINE [Suspect]
     Indication: COLITIS
     Dosage: 2 OR 4 MG/KG/ DAY FOR 16 DAYS, INTRAVENOUS
     Route: 042
  2. INFLIXIMAB [Suspect]
     Indication: COLITIS
     Dosage: 5 MG/KG X 2 INFUSIONS, INTRAVENOUS DRIP
     Route: 041

REACTIONS (3)
  - OFF LABEL USE [None]
  - PULMONARY EMBOLISM [None]
  - TREATMENT FAILURE [None]
